FAERS Safety Report 5278117-1 (Version None)
Quarter: 2007Q1

REPORT INFORMATION
  Report Type: 
  Country: None (occurrence: None)
  Receive Date: 20061213
  Receipt Date: 20050728
  Transmission Date: 20070707
  Serious: Yes (Hospitalization)
  Sender: FDA-Public Use
  Company Number: 2005UW11221

PATIENT
  Age: 49 Year
  Sex: Female
  Weight: 62.142 kg

DRUGS (2)
  1. SEROQUEL [Suspect]
     Indication: SLEEP DISORDER
     Dosage: 25 MG PO
     Route: 048
  2. ZOLOFT [Concomitant]

REACTIONS (2)
  - CONVULSION [None]
  - HYPOTENSION [None]
